FAERS Safety Report 11333314 (Version 1)
Quarter: 2015Q3

REPORT INFORMATION
  Report Type: Spontaneous
  Country: US (occurrence: US)
  Receive Date: 20150803
  Receipt Date: 20150803
  Transmission Date: 20151125
  Serious: No
  Sender: FDA-Public Use
  Company Number: US-ELI_LILLY_AND_COMPANY-US200709005068

PATIENT
  Age: 43 Year
  Sex: Female
  Weight: 78.46 kg

DRUGS (3)
  1. ZYPREXA [Suspect]
     Active Substance: OLANZAPINE
     Dosage: 2.5 MG, UNK
  2. ZYPREXA [Suspect]
     Active Substance: OLANZAPINE
     Dosage: 1 MG, UNK
  3. ZYPREXA [Suspect]
     Active Substance: OLANZAPINE
     Dosage: 2.5 MG, UNK

REACTIONS (2)
  - Diabetes mellitus [Not Recovered/Not Resolved]
  - Exposure during pregnancy [Recovered/Resolved]

NARRATIVE: CASE EVENT DATE: 2004
